FAERS Safety Report 7035956-4 (Version None)
Quarter: 2010Q4

REPORT INFORMATION
  Report Type: 
  Country: None (occurrence: None)
  Receive Date: 20101008
  Receipt Date: 20101005
  Transmission Date: 20110411
  Serious: Yes (Death)
  Sender: FDA-Public Use
  Company Number: DE-CEPHALON-2010005237

PATIENT
  Age: 88 Year
  Sex: Male
  Weight: 56 kg

DRUGS (2)
  1. EFFENTORA [Suspect]
     Indication: CANCER PAIN
     Route: 002
  2. TRANSTEC PRO [Concomitant]
     Indication: CANCER PAIN

REACTIONS (2)
  - DRUG PRESCRIBING ERROR [None]
  - PROSTATE CANCER [None]
